FAERS Safety Report 5773359-0 (Version None)
Quarter: 2008Q2

REPORT INFORMATION
  Report Type: 
  Country: None (occurrence: None)
  Receive Date: 20080616
  Receipt Date: 20080604
  Transmission Date: 20081010
  Serious: Yes (Other)
  Sender: FDA-Public Use
  Company Number: US-JNJFOC-20080601002

PATIENT
  Age: 72 Year
  Sex: Male
  Weight: 99.79 kg

DRUGS (4)
  1. REMICADE [Suspect]
     Route: 042
  2. REMICADE [Suspect]
     Route: 042
  3. REMICADE [Suspect]
     Indication: CROHN'S DISEASE
     Dosage: 2 DOSES ^ A COUPLE OF YEARS AGO^
     Route: 042
  4. ENTOCORT EC [Concomitant]

REACTIONS (1)
  - RENAL CELL CARCINOMA [None]
